FAERS Safety Report 9046964 (Version 1)
Quarter: 2013Q1

REPORT INFORMATION
  Report Type: Spontaneous
  Country: US (occurrence: None)
  Receive Date: 20130129
  Receipt Date: 20130129
  Transmission Date: 20140127
  Serious: Yes (Death)
  Sender: FDA-Public Use
  Company Number: None

PATIENT
  Age: 75 Year
  Sex: Male
  Weight: 82.2 kg

DRUGS (1)
  1. PRADAXA [Suspect]
     Indication: ATRIAL FIBRILLATION
     Dosage: UNCERTAIN- BELIEVED TO BE 150, TWICE DAILY, PO
     Route: 048
     Dates: start: 20120901, end: 20121008

REACTIONS (6)
  - Haemorrhagic stroke [None]
  - Brain herniation [None]
  - Platelet count decreased [None]
  - Glomerular filtration rate decreased [None]
  - Red blood cell sedimentation rate increased [None]
  - Hypertension [None]
